FAERS Safety Report 8112956-4 (Version None)
Quarter: 2012Q1

REPORT INFORMATION
  Report Type: 
  Country: None (occurrence: None)
  Receive Date: 20120203
  Receipt Date: 20120123
  Transmission Date: 20120608
  Serious: Yes (Hospitalization, Disabling)
  Sender: FDA-Public Use
  Company Number: CG-MERCK-1201USA03078

PATIENT
  Age: 48 Year
  Sex: Male
  Weight: 66 kg

DRUGS (1)
  1. STROMECTOL [Suspect]
     Indication: ONCHOCERCIASIS
     Route: 048
     Dates: start: 20111113, end: 20111113

REACTIONS (12)
  - CONJUNCTIVAL HAEMORRHAGE [None]
  - PYREXIA [None]
  - ARTHRALGIA [None]
  - DEPRESSED LEVEL OF CONSCIOUSNESS [None]
  - EXPRESSIVE LANGUAGE DISORDER [None]
  - MALARIA [None]
  - FAECAL INCONTINENCE [None]
  - PARAPLEGIA [None]
  - ENCEPHALOPATHY [None]
  - HEADACHE [None]
  - URINARY INCONTINENCE [None]
  - DIARRHOEA [None]
